FAERS Safety Report 20398686 (Version 4)
Quarter: 2022Q1

REPORT INFORMATION
  Report Type: Spontaneous
  Country: US (occurrence: US)
  Receive Date: 20220131
  Receipt Date: 20220310
  Transmission Date: 20220423
  Serious: Yes (Other)
  Sender: FDA-Public Use
  Company Number: US-JNJFOC-20220140141

PATIENT
  Age: 72 Year
  Sex: Female

DRUGS (5)
  1. TREMFYA [Suspect]
     Active Substance: GUSELKUMAB
     Indication: Psoriasis
     Route: 058
  2. TREMFYA [Suspect]
     Active Substance: GUSELKUMAB
     Indication: Psoriatic arthropathy
  3. AMLODIPINE [Concomitant]
     Active Substance: AMLODIPINE BESYLATE
     Indication: Product used for unknown indication
     Route: 048
  4. ALCLOMETASONE [Concomitant]
     Active Substance: ALCLOMETASONE
     Indication: Psoriasis
     Route: 061
     Dates: start: 201909
  5. MOMETASONE [Concomitant]
     Active Substance: MOMETASONE
     Indication: Psoriasis
     Route: 061
     Dates: start: 201909

REACTIONS (4)
  - Psoriatic arthropathy [Unknown]
  - Psoriasis [Unknown]
  - Drug delivery system malfunction [Unknown]
  - Product dose omission issue [Unknown]

NARRATIVE: CASE EVENT DATE: 20220120
